FAERS Safety Report 5693759-7 (Version None)
Quarter: 2008Q2

REPORT INFORMATION
  Report Type: 
  Country: None (occurrence: None)
  Receive Date: 20080403
  Receipt Date: 20080326
  Transmission Date: 20081010
  Serious: Yes (Other)
  Sender: FDA-Public Use
  Company Number: US-JNJFOC-20080306866

PATIENT
  Sex: Female
  Weight: 63.5 kg

DRUGS (3)
  1. DURAGESIC-100 [Suspect]
     Indication: ARTHRALGIA
     Dosage: 25 AND 12.5UG PATCH
     Route: 062
  2. OXYCODONE HCL [Concomitant]
     Route: 048
  3. ATIVAN [Concomitant]
     Indication: PANIC DISORDER
     Route: 048

REACTIONS (2)
  - EXPIRED DRUG ADMINISTERED [None]
  - HYPERTENSION [None]
